FAERS Safety Report 23632737 (Version 1)
Quarter: 2024Q1

REPORT INFORMATION
  Report Type: Spontaneous
  Country: US (occurrence: US)
  Receive Date: 20240314
  Receipt Date: 20240314
  Transmission Date: 20240410
  Serious: No
  Sender: FDA-Public Use
  Company Number: ENDB23-03237

PATIENT
  Age: 58 Year
  Sex: Male

DRUGS (2)
  1. XIAFLEX [Suspect]
     Active Substance: COLLAGENASE CLOSTRIDIUM HISTOLYTICUM
     Indication: Dupuytren^s contracture
     Dosage: 0.58 MG, UNKNOWN (INITIAL INJECTION, RIGHT HAND)
     Route: 026
     Dates: start: 20230814, end: 2023
  2. XIAFLEX [Suspect]
     Active Substance: COLLAGENASE CLOSTRIDIUM HISTOLYTICUM
     Dosage: UNK UNKNOWN, UNKNOWN (IN A DIFFERENT HAND AND JOINT BEFORE)
     Route: 065

REACTIONS (1)
  - Drug ineffective [Unknown]

NARRATIVE: CASE EVENT DATE: 20230801
